FAERS Safety Report 6645625-8 (Version None)
Quarter: 2010Q1

REPORT INFORMATION
  Report Type: 
  Country: None (occurrence: None)
  Receive Date: 20100323
  Receipt Date: 20100316
  Transmission Date: 20100710
  Serious: Yes (Hospitalization)
  Sender: FDA-Public Use
  Company Number: JP-ASTRAZENECA-2010SE09364

PATIENT
  Age: 21013 Day
  Sex: Male
  Weight: 60 kg

DRUGS (10)
  1. ANAPEINE [Suspect]
     Indication: ANALGESIC THERAPY
     Dosage: 0.2% 5ML/H
     Route: 008
     Dates: start: 20100222, end: 20100224
  2. DALACIN-P [Suspect]
     Indication: PNEUMONIA
     Route: 041
     Dates: start: 20100213, end: 20100224
  3. FAMOTIDINE [Suspect]
     Indication: PROPHYLAXIS
     Route: 048
     Dates: start: 20100214, end: 20100224
  4. FIBLAST [Suspect]
     Indication: DECUBITUS ULCER
     Route: 061
     Dates: start: 20100214, end: 20100224
  5. DORIPENEM MONOHYDRATE [Concomitant]
     Indication: PNEUMONIA
     Route: 041
     Dates: start: 20100213, end: 20100221
  6. BIOFERMIN [Concomitant]
     Indication: GASTROINTESTINAL DISORDER
     Route: 048
     Dates: start: 20100214, end: 20100224
  7. FENTANYL [Concomitant]
     Indication: ANAESTHESIA PROCEDURE
     Route: 042
     Dates: start: 20100215, end: 20100215
  8. MUSCULAX [Concomitant]
     Indication: ANAESTHESIA PROCEDURE
     Route: 042
     Dates: start: 20100215, end: 20100215
  9. SEVOFLURANE [Concomitant]
     Indication: ANAESTHESIA PROCEDURE
     Route: 055
     Dates: start: 20100215, end: 20100215
  10. LOXONIN [Concomitant]
     Indication: ANALGESIC THERAPY
     Route: 048
     Dates: start: 20100225, end: 20100303

REACTIONS (1)
  - HEPATIC FUNCTION ABNORMAL [None]
